FAERS Safety Report 8288856-6 (Version None)
Quarter: 2012Q2

REPORT INFORMATION
  Report Type: 
  Country: None (occurrence: None)
  Receive Date: 20120417
  Receipt Date: 20090513
  Transmission Date: 20120825
  Serious: Yes (Other)
  Sender: FDA-Public Use
  Company Number: US-BAYER-200827614NA

PATIENT
  Sex: Female
  Weight: 72.109 kg

DRUGS (17)
  1. LOPID [Concomitant]
  2. OXYCONTIN [Concomitant]
  3. NEORAL [Concomitant]
  4. COUMADIN [Concomitant]
  5. VIOXX [Concomitant]
  6. MAGNEVIST [Suspect]
     Indication: NUCLEAR MAGNETIC RESONANCE IMAGING BRAIN
     Dosage: UNK UNK, ONCE
     Dates: start: 20010323, end: 20010323
  7. PHOSLO [Concomitant]
  8. AMITRIPTYLINE HCL [Concomitant]
  9. SENSIPAR [Concomitant]
  10. VERAPAMIL [Concomitant]
  11. NEPHROCAPS [Concomitant]
  12. QUININE SULFATE [Concomitant]
  13. GADOLINIUM IN UNSPECIFIED DRUG [Suspect]
     Indication: DIAGNOSTIC PROCEDURE
     Dosage: 8 ML, ONCE
     Dates: start: 20000524, end: 20000524
  14. MYCOPHENOLATE MOFETIL (CELLCEPT) [Concomitant]
  15. EPOGEN [Concomitant]
  16. METOPROLOL [Concomitant]
  17. HYDROCHLOROTHIAZIDE [Concomitant]

REACTIONS (13)
  - NEPHROGENIC SYSTEMIC FIBROSIS [None]
  - INJURY [None]
  - ANXIETY [None]
  - DEPRESSION [None]
  - GENERAL PHYSICAL HEALTH DETERIORATION [None]
  - SCAR [None]
  - DRY EYE [None]
  - QUALITY OF LIFE DECREASED [None]
  - JOINT RANGE OF MOTION DECREASED [None]
  - PAIN [None]
  - ACTIVITIES OF DAILY LIVING IMPAIRED [None]
  - MOBILITY DECREASED [None]
  - MYALGIA [None]
